FAERS Safety Report 23567535 (Version 1)
Quarter: 2024Q1

REPORT INFORMATION
  Report Type: Spontaneous
  Country: JP (occurrence: JP)
  Receive Date: 20240226
  Receipt Date: 20240226
  Transmission Date: 20240409
  Serious: Yes (Hospitalization)
  Sender: FDA-Public Use
  Company Number: JP-MEIJISEIKA-202400833_P_1

PATIENT
  Age: 70 Year

DRUGS (1)
  1. REFLEX [Suspect]
     Active Substance: MIRTAZAPINE
     Indication: Product used for unknown indication
     Dosage: 3 TABLETS
     Route: 048

REACTIONS (1)
  - Hospitalisation [Unknown]
